FAERS Safety Report 7148446-5 (Version None)
Quarter: 2010Q4

REPORT INFORMATION
  Report Type: 
  Country: None (occurrence: None)
  Receive Date: 20101209
  Receipt Date: 20101203
  Transmission Date: 20110411
  Serious: Yes (Death)
  Sender: FDA-Public Use
  Company Number: US-PFIZER INC-HQWYE225603NOV04

PATIENT
  Sex: Female
  Weight: 61 kg

DRUGS (8)
  1. PREMPRO [Suspect]
     Indication: HORMONE REPLACEMENT THERAPY
     Dosage: UNK
     Dates: start: 19970101, end: 20030101
  2. PREMPRO [Suspect]
     Indication: PROPHYLAXIS
  3. PREMARIN [Suspect]
     Indication: HORMONE REPLACEMENT THERAPY
     Dosage: 0.3 MG, UNK
     Dates: start: 19980301, end: 19980701
  4. CYCRIN [Suspect]
     Indication: HORMONE REPLACEMENT THERAPY
     Dosage: 2.5 MG, UNK
     Dates: start: 19990101, end: 19990401
  5. CYCRIN [Suspect]
     Dosage: 3 MG, UNK
  6. ESTRATEST H.S. [Suspect]
     Indication: HORMONE REPLACEMENT THERAPY
     Dosage: UNK
     Dates: start: 19990101, end: 19990401
  7. PREVACID [Concomitant]
     Indication: GASTROOESOPHAGEAL REFLUX DISEASE
     Dosage: 30 MG, UNK
     Dates: start: 20010101, end: 20070101
  8. FEXOFENADINE [Concomitant]
     Indication: HYPERSENSITIVITY
     Dosage: 60 MG, UNK
     Dates: start: 20000101, end: 20070101

REACTIONS (1)
  - BREAST CANCER METASTATIC [None]
